FAERS Safety Report 21280021 (Version 1)
Quarter: 2022Q3

REPORT INFORMATION
  Report Type: Spontaneous
  Country: US (occurrence: None)
  Receive Date: 20220831
  Receipt Date: 20220831
  Transmission Date: 20221027
  Serious: Yes (Other)
  Sender: FDA-Public Use
  Company Number: None

PATIENT
  Age: 35 Year
  Sex: Female
  Weight: 63 kg

DRUGS (7)
  1. SUBOXONE [Suspect]
     Active Substance: BUPRENORPHINE HYDROCHLORIDE\NALOXONE HYDROCHLORIDE
     Indication: Drug withdrawal syndrome
     Dosage: OTHER QUANTITY : 1 SUBLINGUAL FILM;?FREQUENCY : DAILY;?
     Route: 060
     Dates: start: 20151114, end: 20191201
  2. CLINDAMYCIN [Concomitant]
     Active Substance: CLINDAMYCIN
  3. IBUPROFEN [Concomitant]
     Active Substance: IBUPROFEN
  4. Mega EPA/DHA [Concomitant]
  5. MAGNESIUM CHLORIDE\MAGNESIUM GLUCONATE [Concomitant]
     Active Substance: MAGNESIUM CHLORIDE\MAGNESIUM GLUCONATE
  6. Vitamin E [Concomitant]
  7. MELATONIN [Concomitant]
     Active Substance: MELATONIN

REACTIONS (8)
  - Teeth brittle [None]
  - Tooth loss [None]
  - Dental caries [None]
  - Tooth infection [None]
  - Cellulitis [None]
  - Swelling face [None]
  - Pain [None]
  - Chest pain [None]

NARRATIVE: CASE EVENT DATE: 20220710
